FAERS Safety Report 10980345 (Version 2)
Quarter: 2015Q2

REPORT INFORMATION
  Report Type: Spontaneous
  Country: US (occurrence: US)
  Receive Date: 20150402
  Receipt Date: 20150525
  Transmission Date: 20150821
  Serious: No
  Sender: FDA-Public Use
  Company Number: US-JNJFOC-20130904837

PATIENT
  Age: 69 Year
  Sex: Female
  Weight: 47.17 kg

DRUGS (2)
  1. IMODIUM MULTI-SYMPTOM RELIEF [Suspect]
     Active Substance: DIMETHICONE\LOPERAMIDE HYDROCHLORIDE
     Route: 048
  2. IMODIUM MULTI-SYMPTOM RELIEF [Suspect]
     Active Substance: DIMETHICONE\LOPERAMIDE HYDROCHLORIDE
     Indication: DIARRHOEA
     Dosage: 1-2 CAPLETS 2-3 TIMES A WEEK. 2 CAPLETS FIRST AND THEN 1 WITH THE NEXT LOOSE STOOL AND THEN ANOTHER.
     Route: 048

REACTIONS (1)
  - Drug ineffective [Unknown]
